FAERS Safety Report 21802537 (Version 1)
Quarter: 2022Q4

REPORT INFORMATION
  Report Type: Spontaneous
  Country: PT (occurrence: PT)
  Receive Date: 20221231
  Receipt Date: 20221231
  Transmission Date: 20230113
  Serious: Yes (Hospitalization)
  Sender: FDA-Public Use
  Company Number: None

PATIENT
  Age: 58 Year
  Sex: Male

DRUGS (12)
  1. COTRIMOXAZOLE [Suspect]
     Active Substance: SULFAMETHOXAZOLE\TRIMETHOPRIM
     Indication: Respiratory failure
     Dosage: FROM 12/12H; FOR ACTIVE INGREDIENT TRIMETOPRIM THE STRENGTH IS 160 MILLIGRAM; FOR ACTIVE INGREDIENT
     Route: 065
     Dates: start: 20221108
  2. FLUCONAZOLE [Suspect]
     Active Substance: FLUCONAZOLE
     Indication: Gastrooesophageal reflux disease
     Dosage: 200 MILLIGRAM DAILY; TAKE DAILY
     Route: 065
     Dates: start: 20221115, end: 20221202
  3. FLUCONAZOLE [Suspect]
     Active Substance: FLUCONAZOLE
     Indication: Oesophageal candidiasis
  4. PANTOPRAZOLE [Concomitant]
     Active Substance: PANTOPRAZOLE
     Indication: Product used for unknown indication
  5. FERROUS SULFATE [Concomitant]
     Active Substance: FERROUS SULFATE
     Indication: Product used for unknown indication
  6. APIDRA [Concomitant]
     Active Substance: INSULIN GLULISINE
     Indication: Product used for unknown indication
     Dosage: 2U IN SOS IF BLOOD GLUCOSE IS GREATER THAN 150; INCREASES 1U FOR EVERY 50 ABOVE 150
  7. RILMENIDINE [Concomitant]
     Active Substance: RILMENIDINE
     Indication: Product used for unknown indication
     Dosage: 1 MILLIGRAM DAILY; TO PA
     Dates: end: 20221004
  8. PERINDOPRIL [Concomitant]
     Active Substance: PERINDOPRIL
     Indication: Product used for unknown indication
     Dosage: TO PA
  9. VILDAGLIPTIN [Concomitant]
     Active Substance: VILDAGLIPTIN
     Indication: Product used for unknown indication
     Dosage: 50 MILLIGRAM DAILY; TO PA
  10. SERENAL [Concomitant]
     Indication: Product used for unknown indication
     Dosage: 15 MILLIGRAM DAILY;
  11. NIFEDIPINE [Concomitant]
     Active Substance: NIFEDIPINE
     Indication: Product used for unknown indication
     Dosage: 1 FOR PA
     Dates: end: 20221004
  12. FUROSEMIDE [Concomitant]
     Active Substance: FUROSEMIDE
     Indication: Product used for unknown indication
     Dosage: 40 MILLIGRAM DAILY;

REACTIONS (1)
  - Hyperkalaemia [Not Recovered/Not Resolved]

NARRATIVE: CASE EVENT DATE: 20221129
